FAERS Safety Report 8834563 (Version 1)
Quarter: 2012Q4

REPORT INFORMATION
  Report Type: 
  Country: AU (occurrence: AU)
  Receive Date: 20121010
  Receipt Date: 20121010
  Transmission Date: 20130627
  Serious: Yes (Hospitalization)
  Sender: FDA-Public Use
  Company Number: AU-B.I. PHARMACEUTICALS,INC./RIDGEFIELD-2012-AU-01719AU

PATIENT
  Age: 77 None
  Sex: Female

DRUGS (4)
  1. PRADAXA [Suspect]
     Indication: ATRIAL FIBRILLATION
     Dosage: 220 mg
     Dates: start: 2011
  2. CARDIZEM [Concomitant]
     Dosage: 240 mg
  3. CRESTOR [Concomitant]
     Dosage: 5 mg
  4. OROXINE [Concomitant]
     Dosage: 75 mg

REACTIONS (6)
  - Melaena [Unknown]
  - Melaena [Not Recovered/Not Resolved]
  - Dizziness [Not Recovered/Not Resolved]
  - Fatigue [Not Recovered/Not Resolved]
  - Polyp [Unknown]
  - Diarrhoea [Unknown]
